FAERS Safety Report 18574592 (Version 1)
Quarter: 2020Q4

REPORT INFORMATION
  Report Type: Spontaneous
  Country: US (occurrence: US)
  Receive Date: 20201202
  Receipt Date: 20201202
  Transmission Date: 20210114
  Serious: Yes (Hospitalization)
  Sender: FDA-Public Use
  Company Number: None

PATIENT
  Age: 94 Year
  Sex: Female
  Weight: 57 kg

DRUGS (1)
  1. BACLOFEN 10MG [Suspect]
     Active Substance: BACLOFEN

REACTIONS (5)
  - Metabolic encephalopathy [None]
  - Lethargy [None]
  - Toxicity to various agents [None]
  - Vomiting [None]
  - Somnolence [None]

NARRATIVE: CASE EVENT DATE: 20201125
